FAERS Safety Report 5168620-7 (Version None)
Quarter: 2006Q4

REPORT INFORMATION
  Report Type: 
  Country: None (occurrence: None)
  Receive Date: 20061209
  Receipt Date: 20061129
  Transmission Date: 20070319
  Serious: Yes (Hospitalization)
  Sender: FDA-Public Use
  Company Number: JP-ABBOTT-06P-087-0352065-00

PATIENT
  Age: 76 Year
  Sex: Male

DRUGS (3)
  1. KLARICID [Suspect]
     Indication: ATYPICAL MYCOBACTERIAL INFECTION
     Route: 048
  2. RIFAMPICIN [Concomitant]
     Indication: ATYPICAL MYCOBACTERIAL INFECTION
     Route: 048
  3. ETHAMBUTOL HCL [Concomitant]
     Indication: ATYPICAL MYCOBACTERIAL INFECTION
     Route: 048

REACTIONS (2)
  - ERYTHEMA [None]
  - MOUTH ULCERATION [None]
